FAERS Safety Report 7072200-6 (Version None)
Quarter: 2010Q4

REPORT INFORMATION
  Report Type: 
  Country: None (occurrence: None)
  Receive Date: 20101029
  Receipt Date: 20091217
  Transmission Date: 20110411
  Serious: No
  Sender: FDA-Public Use
  Company Number: A0835638A

PATIENT
  Age: 71 Year
  Sex: Female

DRUGS (10)
  1. ADVAIR DISKUS 100/50 [Suspect]
     Indication: LUNG DISORDER
     Dosage: 1PUFF TWICE PER DAY
     Route: 055
     Dates: start: 20090701
  2. SPIRIVA [Concomitant]
  3. PLAVIX [Concomitant]
  4. GLIPIZIDE [Concomitant]
  5. SOTALOL [Concomitant]
  6. ASPIRIN [Concomitant]
  7. VITAMIN TAB [Concomitant]
  8. POTASSIUM CHLORIDE [Concomitant]
  9. COUMADIN [Concomitant]
  10. INSULIN [Concomitant]

REACTIONS (2)
  - EYE PAIN [None]
  - OCULAR HYPERAEMIA [None]
